FAERS Safety Report 11402238 (Version 1)
Quarter: 2015Q3

REPORT INFORMATION
  Report Type: Spontaneous
  Country: US (occurrence: US)
  Receive Date: 20150821
  Receipt Date: 20150821
  Transmission Date: 20151125
  Serious: No
  Sender: FDA-Public Use
  Company Number: US-ROCHE-1287382

PATIENT
  Age: 64 Year
  Sex: Male

DRUGS (5)
  1. TELAPREVIR [Suspect]
     Active Substance: TELAPREVIR
     Indication: CHRONIC HEPATITIS C
     Route: 065
     Dates: start: 20130412, end: 20130705
  2. PEGASYS [Suspect]
     Active Substance: PEGINTERFERON ALFA-2A
     Indication: CHRONIC HEPATITIS C
     Route: 058
     Dates: start: 20130412
  3. PEGASYS [Suspect]
     Active Substance: PEGINTERFERON ALFA-2A
     Route: 058
     Dates: start: 20130913, end: 20131026
  4. COPEGUS [Suspect]
     Active Substance: RIBAVIRIN
     Indication: CHRONIC HEPATITIS C
     Dosage: IN TWO DIVIDED DOSED
     Route: 048
     Dates: start: 20130412
  5. COPEGUS [Suspect]
     Active Substance: RIBAVIRIN
     Route: 048
     Dates: start: 20130913, end: 20131026

REACTIONS (4)
  - Full blood count decreased [Unknown]
  - Pruritus [Unknown]
  - Fatigue [Unknown]
  - Dry skin [Unknown]

NARRATIVE: CASE EVENT DATE: 201305
